FAERS Safety Report 5756093-2 (Version None)
Quarter: 2008Q2

REPORT INFORMATION
  Report Type: 
  Country: None (occurrence: None)
  Receive Date: 20080602
  Receipt Date: 20080122
  Transmission Date: 20081010
  Serious: No
  Sender: FDA-Public Use
  Company Number: US-BOEHRINGER INGELHEIM GMBH, GERMANY-2007-BP-16666BP

PATIENT
  Sex: Female

DRUGS (15)
  1. MIRAPEX [Suspect]
     Indication: PARKINSON'S DISEASE
     Dates: start: 20001001, end: 20050925
  2. COMTAN [Concomitant]
     Indication: PARKINSON'S DISEASE
  3. SINEMET [Concomitant]
     Indication: PARKINSON'S DISEASE
  4. REQUIP [Concomitant]
     Indication: PARKINSON'S DISEASE
  5. KLONOPIN [Concomitant]
     Indication: SLEEP DISORDER
  6. NEXIUM [Concomitant]
  7. INDAPAMIDE [Concomitant]
  8. CIPROFLOXACIN HCL [Concomitant]
  9. ACTONEL [Concomitant]
  10. PRILOSEC [Concomitant]
  11. ASPIRIN [Concomitant]
  12. NORVASC [Concomitant]
  13. ATENOLOL [Concomitant]
  14. LOZOL [Concomitant]
  15. CARBIDOPA/LEVODOPA ER [Concomitant]

REACTIONS (9)
  - ANXIETY [None]
  - DEPRESSION [None]
  - DIABETES MELLITUS [None]
  - EMOTIONAL DISTRESS [None]
  - FEAR [None]
  - HYPERPHAGIA [None]
  - PAIN [None]
  - PATHOLOGICAL GAMBLING [None]
  - WEIGHT INCREASED [None]
